FAERS Safety Report 25323200 (Version 1)
Quarter: 2025Q2

REPORT INFORMATION
  Report Type: Spontaneous
  Country: US (occurrence: US)
  Receive Date: 20250516
  Receipt Date: 20250516
  Transmission Date: 20250716
  Serious: No
  Sender: MYLAN
  Company Number: US-MYLANLABS-2025M1039194

PATIENT
  Age: 37 Year
  Sex: Female
  Weight: 56.7 kg

DRUGS (1)
  1. XULANE [Suspect]
     Active Substance: ETHINYL ESTRADIOL\NORELGESTROMIN
     Indication: Product used for unknown indication
     Dosage: 150/35 MICROGRAM, QD (APPLY FOR THREE WEEKS, OFF FOURTH WEEK)
     Dates: start: 20250421

REACTIONS (2)
  - Product adhesion issue [Unknown]
  - Product communication issue [Unknown]

NARRATIVE: CASE EVENT DATE: 20250421
